FAERS Safety Report 7106368-X (Version None)
Quarter: 2010Q4

REPORT INFORMATION
  Report Type: 
  Country: None (occurrence: None)
  Receive Date: 20101116
  Receipt Date: 20100527
  Transmission Date: 20110411
  Serious: Yes (Other)
  Sender: FDA-Public Use
  Company Number: US-PFIZER INC-2010041988

PATIENT
  Age: 88 Year
  Sex: Female

DRUGS (2)
  1. TOVIAZ [Suspect]
     Indication: HYPERTONIC BLADDER
     Dosage: 8 MG, 1X/DAY
     Dates: start: 20100301, end: 20100101
  2. TOVIAZ [Suspect]
     Dosage: 4 MG, 1X/DAY

REACTIONS (1)
  - URINARY RETENTION [None]
